FAERS Safety Report 5173312-4 (Version None)
Quarter: 2006Q4

REPORT INFORMATION
  Report Type: 
  Country: None (occurrence: None)
  Receive Date: 20061214
  Receipt Date: 20061205
  Transmission Date: 20070319
  Serious: Yes (Hospitalization)
  Sender: FDA-Public Use
  Company Number: FR-JNJFOC-20060904445

PATIENT
  Age: 19 Year
  Sex: Female
  Weight: 57 kg

DRUGS (7)
  1. REMICADE [Suspect]
     Route: 042
  2. REMICADE [Suspect]
     Indication: CROHN'S DISEASE
     Route: 042
  3. SERETIDE [Concomitant]
     Route: 065
  4. TRILEPTAL [Concomitant]
     Indication: EPILEPSY
     Route: 048
  5. ENTOCORT [Concomitant]
     Route: 065
  6. IMUREL [Concomitant]
     Indication: CROHN'S DISEASE
     Route: 065
  7. CORTANCYL [Concomitant]
     Route: 048

REACTIONS (3)
  - CROHN'S DISEASE [None]
  - DRUG EXPOSURE DURING PREGNANCY [None]
  - SACROILIITIS [None]
